FAERS Safety Report 20586087 (Version 1)
Quarter: 2022Q1

REPORT INFORMATION
  Report Type: Spontaneous
  Country: US (occurrence: US)
  Receive Date: 20220313
  Receipt Date: 20220313
  Transmission Date: 20220423
  Serious: No
  Sender: FDA-Public Use
  Company Number: US-CELGENE-USA-20220303822

PATIENT
  Sex: Female
  Weight: 72.186 kg

DRUGS (1)
  1. REVLIMID [Suspect]
     Active Substance: LENALIDOMIDE
     Indication: Plasma cell myeloma
     Dosage: 15 MILLIGRAM
     Route: 048
     Dates: start: 20220122

REACTIONS (3)
  - Performance status decreased [Unknown]
  - Blood creatinine increased [Unknown]
  - Thrombocytopenia [Unknown]
